FAERS Safety Report 12424586 (Version 1)
Quarter: 2016Q2

REPORT INFORMATION
  Report Type: Spontaneous
  Country: JP (occurrence: JP)
  Receive Date: 20160601
  Receipt Date: 20160601
  Transmission Date: 20160815
  Serious: Yes (Other)
  Sender: FDA-Public Use
  Company Number: JP-PFIZER INC-2016277239

PATIENT

DRUGS (1)
  1. XALATAN [Suspect]
     Active Substance: LATANOPROST
     Indication: NORMAL TENSION GLAUCOMA
     Dosage: UNK
     Route: 047

REACTIONS (1)
  - Physical disability [Unknown]
